FAERS Safety Report 4576083-5 (Version None)
Quarter: 2005Q1

REPORT INFORMATION
  Report Type: 
  Country: None (occurrence: None)
  Receive Date: 20050204
  Receipt Date: 20050121
  Transmission Date: 20050727
  Serious: Yes (Hospitalization)
  Sender: FDA-Public Use
  Company Number: 2005SE00406

PATIENT
  Age: 70 Year
  Sex: Female

DRUGS (15)
  1. TENORMIN [Suspect]
     Indication: HYPERTENSION
  2. ROSUVASTATIN CODE NOT BROKEN [Suspect]
     Indication: CORONARY ARTERY DISEASE
     Dates: start: 20041123, end: 20050104
  3. ROSUVASTATIN CODE NOT BROKEN [Suspect]
     Indication: CORONARY ARTERY DISEASE
     Dates: start: 20050105
  4. SALAZOPYRIN [Concomitant]
  5. METOTREXAT [Concomitant]
  6. MONOKET OD [Concomitant]
  7. THROMBYL [Concomitant]
  8. SALURES-K [Concomitant]
  9. ENALAPRIL MALEATE [Concomitant]
  10. IDEOS [Concomitant]
  11. FOLACIN [Concomitant]
  12. ESTRADIOL [Concomitant]
  13. LANSOPRAZOLE [Concomitant]
  14. IMOVANE [Concomitant]
  15. VISCOTEARS [Concomitant]

REACTIONS (1)
  - TRANSIENT ISCHAEMIC ATTACK [None]
